FAERS Safety Report 6119030-7 (Version None)
Quarter: 2009Q1

REPORT INFORMATION
  Report Type: 
  Country: None (occurrence: None)
  Receive Date: 20090316
  Receipt Date: 20090309
  Transmission Date: 20090719
  Serious: Yes (Hospitalization, Other)
  Sender: FDA-Public Use
  Company Number: US-BAYER-200912361NA

PATIENT
  Age: 46 Year
  Sex: Female
  Weight: 52 kg

DRUGS (5)
  1. MIRENA [Suspect]
     Indication: MENORRHAGIA
     Route: 015
     Dates: start: 20080808
  2. PROVERA [Concomitant]
     Dates: start: 20080212, end: 20080407
  3. LYBREL [Concomitant]
     Dates: start: 20080408
  4. OVCON-35 [Concomitant]
     Dates: start: 20080501, end: 20080801
  5. CORTICOSTEROID NOS [Concomitant]

REACTIONS (2)
  - DEEP VEIN THROMBOSIS [None]
  - SURGERY [None]
